FAERS Safety Report 4677263-0 (Version None)
Quarter: 2005Q2

REPORT INFORMATION
  Report Type: 
  Country: None (occurrence: None)
  Receive Date: 20050526
  Receipt Date: 20050511
  Transmission Date: 20051028
  Serious: Yes (Hospitalization)
  Sender: FDA-Public Use
  Company Number: DSA_26448_2005

PATIENT
  Age: 75 Year
  Sex: Male

DRUGS (8)
  1. CARDIZEM CD [Suspect]
     Indication: ESSENTIAL HYPERTENSION
     Dosage: 360 MG Q DAY PO
     Route: 048
     Dates: start: 20041004, end: 20041010
  2. GLIMEPIRIDE [Concomitant]
  3. ATORVASTATIN CALCIUM [Concomitant]
  4. PERIACTIN [Concomitant]
  5. ASPIRIN [Concomitant]
  6. NIFEDIPINE [Concomitant]
  7. MONODUR [Concomitant]
  8. METFORMIN [Concomitant]

REACTIONS (5)
  - ABDOMINAL DISTENSION [None]
  - DYSPNOEA EXERTIONAL [None]
  - GENERALISED OEDEMA [None]
  - OEDEMA PERIPHERAL [None]
  - SWELLING FACE [None]
